FAERS Safety Report 15256093 (Version 2)
Quarter: 2018Q3

REPORT INFORMATION
  Report Type: Spontaneous
  Country: JP (occurrence: JP)
  Receive Date: 20180808
  Receipt Date: 20180928
  Transmission Date: 20181010
  Serious: Yes (Hospitalization, Other)
  Sender: FDA-Public Use
  Company Number: JP-009507513-1808JPN000130J

PATIENT
  Age: 79 Year
  Sex: Female
  Weight: 39 kg

DRUGS (6)
  1. SUNRYTHM [Concomitant]
     Active Substance: PILSICAINIDE HYDROCHLORIDE
     Indication: SUPRAVENTRICULAR TACHYCARDIA
     Dosage: 150 G, TID
     Route: 048
     Dates: start: 20180710, end: 20180828
  2. KEYTRUDA [Suspect]
     Active Substance: PEMBROLIZUMAB
     Indication: TRANSITIONAL CELL CARCINOMA
     Dosage: 200 MG, Q3W
     Route: 041
     Dates: start: 20180710, end: 20180710
  3. TAKECAB [Concomitant]
     Active Substance: VONOPRAZAN FUMURATE
     Indication: PEPTIC ULCER
     Dosage: 10 MG, QD
     Route: 048
     Dates: start: 20180710, end: 20180828
  4. CANDESARTAN. [Concomitant]
     Active Substance: CANDESARTAN
     Indication: HYPERTENSION
     Dosage: 4 MG, QD
     Route: 048
     Dates: start: 20180710, end: 20180828
  5. VANCOMYCIN [Suspect]
     Active Substance: VANCOMYCIN
     Indication: PSEUDOMEMBRANOUS COLITIS
     Dosage: 0.5 G, QID
     Route: 041
     Dates: start: 20180723, end: 20180730
  6. BISONO [Concomitant]
     Active Substance: BISOPROLOL
     Dosage: 4 MG, UNKNOWN
     Route: 062
     Dates: start: 20180715, end: 20180730

REACTIONS (5)
  - Depressed level of consciousness [Unknown]
  - Cholangitis sclerosing [Recovering/Resolving]
  - Condition aggravated [Recovering/Resolving]
  - Dehydration [Unknown]
  - Diarrhoea [Unknown]

NARRATIVE: CASE EVENT DATE: 201807
